FAERS Safety Report 22235884 (Version 2)
Quarter: 2023Q2

REPORT INFORMATION
  Report Type: Spontaneous
  Country: CA (occurrence: CA)
  Receive Date: 20230420
  Receipt Date: 20230515
  Transmission Date: 20230721
  Serious: Yes (Hospitalization)
  Sender: FDA-Public Use
  Company Number: CA-AMERICAN REGENT INC-2023000938

PATIENT
  Age: 43 Year
  Sex: Female

DRUGS (1)
  1. VENOFER [Suspect]
     Active Substance: IRON SUCROSE
     Indication: Blood iron decreased
     Dosage: 20 MILLIGRAM PER 10 MILLILITRE, SINGLE
     Dates: start: 20221126, end: 20221126

REACTIONS (5)
  - Agonal respiration [Unknown]
  - Pulse abnormal [Unknown]
  - Urticaria [Unknown]
  - Hyperhidrosis [Unknown]
  - Loss of consciousness [Unknown]

NARRATIVE: CASE EVENT DATE: 20221126
